FAERS Safety Report 7096421-1 (Version None)
Quarter: 2010Q4

REPORT INFORMATION
  Report Type: 
  Country: None (occurrence: None)
  Receive Date: 20101111
  Receipt Date: 20090929
  Transmission Date: 20110411
  Serious: No
  Sender: FDA-Public Use
  Company Number: US-KINGPHARMUSA00001-K200901206

PATIENT
  Age: 74 Year
  Sex: Female

DRUGS (7)
  1. SILVADENE [Suspect]
     Indication: THERMAL BURN
     Dosage: UNK
     Route: 061
  2. DARVOCET [Concomitant]
     Indication: PAIN
     Dosage: UNK
     Route: 048
  3. DARVOCET [Concomitant]
     Indication: BREAST CANCER
  4. ARIMIDEX [Concomitant]
     Indication: BREAST CANCER
     Dosage: UNK
     Route: 048
  5. LAMICTAL [Concomitant]
     Dosage: UNK
     Route: 048
  6. METOPROLOL [Concomitant]
     Indication: HYPERTENSION
     Dosage: UNK
     Route: 048
  7. LISINOPRIL [Concomitant]
     Dosage: UNK
     Route: 048

REACTIONS (2)
  - SKIN DISCOLOURATION [None]
  - SKIN INJURY [None]
